FAERS Safety Report 5737487-8 (Version None)
Quarter: 2008Q2

REPORT INFORMATION
  Report Type: 
  Country: None (occurrence: None)
  Receive Date: 20080514
  Receipt Date: 20080507
  Transmission Date: 20081010
  Serious: Yes (Hospitalization)
  Sender: FDA-Public Use
  Company Number: GB-TEVA-171383ISR

PATIENT
  Age: 46 Year
  Sex: Male

DRUGS (2)
  1. IBUPROFEN TABLETS [Suspect]
  2. VENLAFAXINE HYDROCHLORIDE [Suspect]
     Indication: DEPRESSED MOOD
     Route: 048

REACTIONS (3)
  - CONDITION AGGRAVATED [None]
  - ERYTHRODERMIC PSORIASIS [None]
  - PHOTOSENSITIVITY REACTION [None]
